FAERS Safety Report 6581549-2 (Version None)
Quarter: 2010Q1

REPORT INFORMATION
  Report Type: 
  Country: None (occurrence: None)
  Receive Date: 20100215
  Receipt Date: 20100208
  Transmission Date: 20100710
  Serious: Yes (Hospitalization)
  Sender: FDA-Public Use
  Company Number: US-JNJFOC-20061103324

PATIENT
  Age: 36 Year
  Sex: Male
  Weight: 90.72 kg

DRUGS (1)
  1. TYLENOL (CAPLET) [Suspect]
     Indication: DRUG USE FOR UNKNOWN INDICATION
     Route: 048

REACTIONS (2)
  - HOMICIDE [None]
  - SCHIZOPHRENIA, PARANOID TYPE [None]
